FAERS Safety Report 22603775 (Version 2)
Quarter: 2023Q2

REPORT INFORMATION
  Report Type: Spontaneous
  Country: CN (occurrence: CN)
  Receive Date: 20230615
  Receipt Date: 20230627
  Transmission Date: 20230722
  Serious: Yes (Other)
  Sender: FDA-Public Use
  Company Number: CN-AstraZeneca-2023A134823

PATIENT

DRUGS (8)
  1. GOSERELIN [Suspect]
     Active Substance: GOSERELIN
     Indication: Breast cancer female
     Dosage: UNKNOWN
     Route: 058
  2. GOSERELIN [Suspect]
     Active Substance: GOSERELIN
     Indication: Endocrine disorder
     Dosage: UNKNOWN
     Route: 058
  3. GOSERELIN [Suspect]
     Active Substance: GOSERELIN
     Indication: Blood oestrogen increased
     Dosage: UNKNOWN
     Route: 058
  4. GOSERELIN [Suspect]
     Active Substance: GOSERELIN
     Indication: Amenorrhoea
     Dosage: UNKNOWN
     Route: 058
  5. ZOLADEX [Suspect]
     Active Substance: GOSERELIN ACETATE
     Indication: Breast cancer female
     Dosage: UNK
     Route: 065
  6. ZOLADEX [Suspect]
     Active Substance: GOSERELIN ACETATE
     Indication: Endocrine disorder
  7. ZOLADEX [Suspect]
     Active Substance: GOSERELIN ACETATE
     Indication: Blood oestrogen increased
  8. ZOLADEX [Suspect]
     Active Substance: GOSERELIN ACETATE
     Indication: Amenorrhoea

REACTIONS (5)
  - Shock [Unknown]
  - Haematoma muscle [Unknown]
  - Injection site pain [Unknown]
  - Injection site haematoma [Unknown]
  - Wrong technique in device usage process [Unknown]

NARRATIVE: CASE EVENT DATE: 20230411
